FAERS Safety Report 21314356 (Version 1)
Quarter: 2022Q3

REPORT INFORMATION
  Report Type: Spontaneous
  Country: US (occurrence: None)
  Receive Date: 20220909
  Receipt Date: 20220909
  Transmission Date: 20221027
  Serious: No
  Sender: FDA-Public Use
  Company Number: US-ARIS GLOBAL-202110-1816

PATIENT
  Age: 75 Year
  Sex: Female

DRUGS (7)
  1. OXERVATE [Suspect]
     Active Substance: CENEGERMIN-BKBJ
     Indication: Neurotrophic keratopathy
     Route: 047
     Dates: start: 20210814
  2. DOXEPIN [Concomitant]
     Active Substance: DOXEPIN
  3. RESTASIS [Concomitant]
     Active Substance: CYCLOSPORINE
  4. SPIRONOLACTONE [Concomitant]
     Active Substance: SPIRONOLACTONE
  5. NADOLOL [Concomitant]
     Active Substance: NADOLOL
  6. TOPAMAX [Concomitant]
     Active Substance: TOPIRAMATE
  7. XARELTO [Concomitant]
     Active Substance: RIVAROXABAN

REACTIONS (3)
  - Eye swelling [Unknown]
  - Pharyngitis streptococcal [Unknown]
  - Therapy interrupted [Unknown]
